FAERS Safety Report 9302885 (Version 1)
Quarter: 2013Q2

REPORT INFORMATION
  Report Type: Spontaneous
  Country: US (occurrence: US)
  Receive Date: 20130522
  Receipt Date: 20130522
  Transmission Date: 20140414
  Serious: Yes (Other)
  Sender: FDA-Public Use
  Company Number: US-BAYER-2013-063433

PATIENT
  Age: 44 Year
  Sex: Female
  Weight: 60.77 kg

DRUGS (7)
  1. YAZ [Suspect]
     Indication: ORAL CONTRACEPTION
  2. YAZ [Suspect]
     Indication: ACNE
  3. BOTOX [Concomitant]
     Indication: MIGRAINE
  4. ACYCLOVIR [ACICLOVIR] [Concomitant]
  5. SERTRALINE [Concomitant]
  6. BIAXIN [Concomitant]
  7. IBUPROFEN [Concomitant]

REACTIONS (1)
  - Thrombophlebitis superficial [None]
